FAERS Safety Report 7395825-7 (Version None)
Quarter: 2011Q2

REPORT INFORMATION
  Report Type: 
  Country: None (occurrence: None)
  Receive Date: 20110405
  Receipt Date: 20110323
  Transmission Date: 20111010
  Serious: Yes (Other)
  Sender: FDA-Public Use
  Company Number: FR-GENENTECH-315953

PATIENT
  Sex: Male

DRUGS (11)
  1. RITUXIMAB [Suspect]
     Indication: B-CELL SMALL LYMPHOCYTIC LYMPHOMA STAGE II
     Dosage: 980 MG, QAM
     Route: 042
     Dates: start: 20080812, end: 20080812
  2. VASTAREL [Concomitant]
     Indication: PRODUCT USED FOR UNKNOWN INDICATION
     Dosage: UNK
     Dates: start: 20000101
  3. LEUPROLIDE ACETATE [Concomitant]
     Indication: PRODUCT USED FOR UNKNOWN INDICATION
     Dosage: UNK
     Dates: start: 19970101
  4. SECTRAL [Concomitant]
     Indication: PRODUCT USED FOR UNKNOWN INDICATION
     Dosage: UNK
     Dates: start: 20000101
  5. ENDOXAN [Suspect]
     Indication: B-CELL SMALL LYMPHOCYTIC LYMPHOMA STAGE II
     Dosage: UNK
     Route: 002
     Dates: start: 20080812, end: 20080814
  6. PREVISCAN [Concomitant]
     Indication: PRODUCT USED FOR UNKNOWN INDICATION
     Dosage: UNK
     Dates: start: 20090101
  7. FLECAINE [Concomitant]
     Indication: PRODUCT USED FOR UNKNOWN INDICATION
     Dosage: UNK
     Dates: start: 20090101
  8. FLUDARA [Suspect]
     Indication: B-CELL SMALL LYMPHOCYTIC LYMPHOMA STAGE II
     Dosage: UNK
     Route: 002
     Dates: start: 20080812, end: 20080814
  9. NASONEX [Concomitant]
     Indication: PRODUCT USED FOR UNKNOWN INDICATION
     Dosage: UNK
     Dates: start: 20090101
  10. LERCANIDIPINE [Concomitant]
     Indication: PRODUCT USED FOR UNKNOWN INDICATION
     Dosage: UNK
     Dates: start: 20060101
  11. PARIET [Concomitant]
     Indication: PRODUCT USED FOR UNKNOWN INDICATION
     Dosage: UNK
     Dates: start: 20070101

REACTIONS (1)
  - PROSTATE CANCER [None]
